FAERS Safety Report 13304465 (Version 1)
Quarter: 2017Q1

REPORT INFORMATION
  Report Type: Spontaneous
  Country: CA (occurrence: CA)
  Receive Date: 20170308
  Receipt Date: 20170308
  Transmission Date: 20170428
  Serious: Yes (Hospitalization, Other)
  Sender: FDA-Public Use
  Company Number: CA-TEVA-746308ACC

PATIENT
  Age: 39 Year
  Sex: Female
  Weight: 61.29 kg

DRUGS (1)
  1. SULFAMETHOXAZOLE\TRIMETHOPRIM [Suspect]
     Active Substance: SULFAMETHOXAZOLE\TRIMETHOPRIM
     Indication: URINARY TRACT INFECTION
     Dosage: 2 DOSAGE FORMS DAILY;
     Route: 048

REACTIONS (14)
  - Back pain [Recovering/Resolving]
  - Pyrexia [Recovering/Resolving]
  - Sinus pain [Recovering/Resolving]
  - Tinnitus [Recovering/Resolving]
  - Vomiting [Recovering/Resolving]
  - Sinus congestion [Recovering/Resolving]
  - Sinusitis [Recovering/Resolving]
  - Chills [Recovering/Resolving]
  - Migraine [Recovering/Resolving]
  - Speech disorder [Recovering/Resolving]
  - Nausea [Recovering/Resolving]
  - Blood urine present [Recovering/Resolving]
  - Influenza like illness [Recovering/Resolving]
  - Photophobia [Recovering/Resolving]
